FAERS Safety Report 11427594 (Version 10)
Quarter: 2019Q3

REPORT INFORMATION
  Report Type: Spontaneous
  Country: US (occurrence: US)
  Receive Date: 20150827
  Receipt Date: 20190822
  Transmission Date: 20191004
  Serious: No
  Sender: FDA-Public Use
  Company Number: US-SA-2015SA088421

PATIENT
  Age: 84 Year
  Sex: Female

DRUGS (6)
  1. AVAPRO [Suspect]
     Active Substance: IRBESARTAN
     Indication: HYPERTENSION
     Dosage: 300 MG,QD
     Route: 065
     Dates: start: 20150615, end: 20150615
  2. IRBESARTAN. [Concomitant]
     Active Substance: IRBESARTAN
     Indication: HYPERTENSION
     Dosage: 300 MG, QD
  3. AVAPRO [Suspect]
     Active Substance: IRBESARTAN
     Dosage: UNK UNK,UNK
     Route: 065
     Dates: start: 20130615
  4. AVAPRO [Suspect]
     Active Substance: IRBESARTAN
     Dosage: 300 MG,QD
     Route: 065
  5. AVAPRO [Suspect]
     Active Substance: IRBESARTAN
     Dosage: 300 MG,QD
     Route: 065
     Dates: start: 20180213
  6. AVAPRO [Suspect]
     Active Substance: IRBESARTAN
     Dosage: 150 MG,QD
     Route: 065
     Dates: start: 20150615, end: 20150615

REACTIONS (21)
  - Malaise [Unknown]
  - Product coating issue [Unknown]
  - Vision blurred [Unknown]
  - Product dose omission [Unknown]
  - Headache [Unknown]
  - Throat irritation [Unknown]
  - Chest discomfort [Recovered/Resolved]
  - Drug intolerance [Unknown]
  - Balance disorder [Not Recovered/Not Resolved]
  - Arthropathy [Unknown]
  - Muscle spasms [Unknown]
  - Blood pressure increased [Recovering/Resolving]
  - Asthenia [Recovered/Resolved]
  - Product use complaint [Unknown]
  - Eye infection [Recovering/Resolving]
  - Anal pruritus [Unknown]
  - Feeling abnormal [Unknown]
  - Nervousness [Recovered/Resolved]
  - Dizziness [Not Recovered/Not Resolved]
  - Pruritus [Not Recovered/Not Resolved]
  - Adverse event [Unknown]

NARRATIVE: CASE EVENT DATE: 20150615
